FAERS Safety Report 6871119-0 (Version None)
Quarter: 2010Q3

REPORT INFORMATION
  Report Type: 
  Country: None (occurrence: None)
  Receive Date: 20100723
  Receipt Date: 20100721
  Transmission Date: 20110219
  Serious: Yes (Other)
  Sender: FDA-Public Use
  Company Number: US-JNJCH-2009014014

PATIENT
  Age: 13 Year
  Sex: Female

DRUGS (1)
  1. ZYRTEC [Suspect]
     Indication: EUPHORIC MOOD
     Dosage: TEXT:3 TABS 5/13, 4 TABS 5/14, 2 TABS 5/15
     Route: 048
     Dates: start: 20090513, end: 20090515

REACTIONS (4)
  - DRUG ABUSE [None]
  - INTENTIONAL OVERDOSE [None]
  - OROPHARYNGEAL PAIN [None]
  - PYREXIA [None]
